FAERS Safety Report 6704223-8 (Version None)
Quarter: 2010Q2

REPORT INFORMATION
  Report Type: 
  Country: None (occurrence: None)
  Receive Date: 20100430
  Receipt Date: 20100427
  Transmission Date: 20101027
  Serious: Yes (Hospitalization)
  Sender: FDA-Public Use
  Company Number: DE-GENZYME-FABR-1001344

PATIENT

DRUGS (1)
  1. FABRAZYME [Suspect]
     Indication: FABRY'S DISEASE
     Dosage: 0.3 MG/KG, UNK
     Route: 042

REACTIONS (1)
  - HOSPITALISATION [None]
